FAERS Safety Report 9513697 (Version 3)
Quarter: 2013Q4

REPORT INFORMATION
  Report Type: Spontaneous
  Country: JP (occurrence: JP)
  Receive Date: 20130910
  Receipt Date: 20131008
  Transmission Date: 20140711
  Serious: Yes (Death, Life-Threatening)
  Sender: FDA-Public Use
  Company Number: JP-BRISTOL-MYERS SQUIBB COMPANY-19033604

PATIENT
  Age: 75 Year
  Sex: Male
  Weight: 52.7 kg

DRUGS (1)
  1. ERBITUX SOLN FOR INF 5MG/ML [Suspect]
     Indication: TONGUE NEOPLASM MALIGNANT STAGE UNSPECIFIED
     Dosage: 15-15MAY13-250MG/M2-1IN1WK
     Route: 041
     Dates: start: 20130508, end: 20130508

REACTIONS (2)
  - Interstitial lung disease [Fatal]
  - Acute myocardial infarction [Recovered/Resolved with Sequelae]
